FAERS Safety Report 9405223 (Version 1)
Quarter: 2013Q3

REPORT INFORMATION
  Report Type: Spontaneous
  Country: AU (occurrence: AU)
  Receive Date: 20130717
  Receipt Date: 20130717
  Transmission Date: 20140515
  Serious: Yes (Other)
  Sender: FDA-Public Use
  Company Number: PHHY2013AU074910

PATIENT
  Age: 48 Year
  Sex: Female

DRUGS (8)
  1. METARAMINOL [Suspect]
  2. CEFAZOLIN SODIUM [Suspect]
  3. METRONIDAZOLE [Suspect]
  4. ONDANSETRON HYDROCHLORIDE [Suspect]
  5. PROPOFOL [Suspect]
  6. DEXAMETHASONE [Suspect]
  7. OXYCODONE HYDROCHLORIDE [Suspect]
  8. PARECOXIB SODIUM [Suspect]

REACTIONS (3)
  - Anaphylactic reaction [Unknown]
  - Arteriospasm coronary [Unknown]
  - Stress cardiomyopathy [Unknown]
